FAERS Safety Report 20199641 (Version 1)
Quarter: 2021Q4

REPORT INFORMATION
  Report Type: Spontaneous
  Country: US (occurrence: US)
  Receive Date: 20211217
  Receipt Date: 20211217
  Transmission Date: 20220303
  Serious: No
  Sender: FDA-Public Use
  Company Number: US-BRISTOL-MYERS SQUIBB COMPANY-BMS-2021-130756

PATIENT
  Age: 74 Year
  Sex: Female
  Weight: 47.619 kg

DRUGS (1)
  1. ORENCIA [Suspect]
     Active Substance: ABATACEPT
     Indication: Illness
     Dosage: 125 MILLIGRAM, QWK
     Route: 058
     Dates: start: 20210707

REACTIONS (4)
  - Product leakage [Unknown]
  - Needle issue [Unknown]
  - Incorrect dose administered by device [Unknown]
  - Injection site pain [Unknown]

NARRATIVE: CASE EVENT DATE: 20211130
